FAERS Safety Report 7316469-9 (Version None)
Quarter: 2011Q1

REPORT INFORMATION
  Report Type: 
  Country: None (occurrence: None)
  Receive Date: 20110225
  Receipt Date: 20110216
  Transmission Date: 20110831
  Serious: Yes (Other)
  Sender: FDA-Public Use
  Company Number: CA-BAYER-2011-015150

PATIENT
  Age: 33 Year
  Sex: Female

DRUGS (6)
  1. RISPERIDONE [Concomitant]
     Route: 048
  2. CIPRO XR [Suspect]
     Dosage: 500 MG, QD
     Route: 048
  3. DEXTROAMPHETAMINE [Concomitant]
     Route: 048
  4. DIVALPROEX SODIUM [Concomitant]
     Route: 048
  5. MULTI-VITAMINS [Concomitant]
     Route: 048
  6. VITAMIN B COMPLEX [Concomitant]
     Route: 048

REACTIONS (14)
  - BLOOD SODIUM DECREASED [None]
  - GLOMERULAR FILTRATION RATE DECREASED [None]
  - ELECTROLYTE IMBALANCE [None]
  - ABDOMINAL PAIN [None]
  - ALANINE AMINOTRANSFERASE INCREASED [None]
  - BLOOD CHLORIDE DECREASED [None]
  - BLOOD POTASSIUM INCREASED [None]
  - HEPATITIS [None]
  - RENAL FAILURE [None]
  - ANION GAP DECREASED [None]
  - GAMMA-GLUTAMYLTRANSFERASE DECREASED [None]
  - BLOOD UREA INCREASED [None]
  - DIARRHOEA [None]
  - BLOOD CREATINE INCREASED [None]
